FAERS Safety Report 16494644 (Version 1)
Quarter: 2019Q2

REPORT INFORMATION
  Report Type: Spontaneous
  Country: US (occurrence: US)
  Receive Date: 20190628
  Receipt Date: 20190628
  Transmission Date: 20190711
  Serious: Yes (Hospitalization, Other)
  Sender: FDA-Public Use
  Company Number: US-MYLANLABS-2019M1059340

PATIENT
  Age: 67 Year
  Sex: Female

DRUGS (4)
  1. CAPECITABINE. [Suspect]
     Active Substance: CAPECITABINE
     Indication: ADJUVANT THERAPY
     Dosage: 1000 MILLIGRAM/SQ. METER
     Route: 065
  2. CARBOPLATIN. [Suspect]
     Active Substance: CARBOPLATIN
     Indication: ADJUVANT THERAPY
  3. CAPECITABINE. [Suspect]
     Active Substance: CAPECITABINE
     Indication: ADENOCARCINOMA GASTRIC
     Dosage: 2 CYCLES AS ADJUVANT THERAPY (ONE CYCLE OF CAPECITABINE WAS ADMINISTERED AS 1000MG/M2 TWICE DAILY...
     Route: 065
  4. CARBOPLATIN. [Suspect]
     Active Substance: CARBOPLATIN
     Indication: ADENOCARCINOMA GASTRIC
     Dosage: UNK
     Route: 065

REACTIONS (11)
  - Hyperammonaemia [Recovered/Resolved]
  - Lethargy [Unknown]
  - Urea cycle disorder [Unknown]
  - Delirium [Unknown]
  - Hepatic steatosis [Unknown]
  - Ataxia [Unknown]
  - Confusional state [Recovered/Resolved]
  - Weight decreased [Recovering/Resolving]
  - Encephalopathy [Unknown]
  - Decreased appetite [Recovering/Resolving]
  - Muscular weakness [Not Recovered/Not Resolved]
